FAERS Safety Report 8475029-7 (Version None)
Quarter: 2012Q2

REPORT INFORMATION
  Report Type: 
  Country: None (occurrence: None)
  Receive Date: 20120628
  Receipt Date: 20120619
  Transmission Date: 20120825
  Serious: Yes (Death)
  Sender: FDA-Public Use
  Company Number: JP-JNJFOC-20120405503

PATIENT
  Age: 84 Year
  Sex: Female
  Weight: 45 kg

DRUGS (12)
  1. OLMETEC [Concomitant]
     Route: 048
  2. LASIX [Concomitant]
     Route: 048
  3. TENORMIN [Concomitant]
     Route: 048
  4. SIMPONI [Suspect]
     Indication: RHEUMATOID ARTHRITIS
     Route: 058
     Dates: start: 20120307, end: 20120326
  5. ADALAT CC [Concomitant]
     Route: 048
  6. CELEBREX [Concomitant]
     Indication: RHEUMATOID ARTHRITIS
     Route: 048
     Dates: end: 20120403
  7. TALION [Concomitant]
     Route: 048
  8. ASPIRIN [Concomitant]
     Route: 048
  9. ALDOMET [Concomitant]
     Route: 048
  10. LANSOPRAZOLE [Concomitant]
     Route: 048
  11. NESINA [Concomitant]
     Route: 048
  12. LENDORMIN [Concomitant]
     Route: 048

REACTIONS (1)
  - LEUKAEMIA [None]
